FAERS Safety Report 5927049-1 (Version None)
Quarter: 2008Q4

REPORT INFORMATION
  Report Type: 
  Country: None (occurrence: None)
  Receive Date: 20081022
  Receipt Date: 20081015
  Transmission Date: 20090506
  Serious: Yes (Hospitalization)
  Sender: FDA-Public Use
  Company Number: PHHY2008DE22822

PATIENT
  Sex: Male

DRUGS (1)
  1. EXFORGE [Suspect]
     Indication: HYPERTENSION

REACTIONS (4)
  - ACUTE LYMPHOCYTIC LEUKAEMIA [None]
  - HAEMOGLOBIN DECREASED [None]
  - SKIN DISCOLOURATION [None]
  - THROMBOCYTOPENIA [None]
